FAERS Safety Report 9470642 (Version 1)
Quarter: 2013Q3

REPORT INFORMATION
  Report Type: Spontaneous
  Country: FR (occurrence: FR)
  Receive Date: 20130822
  Receipt Date: 20130822
  Transmission Date: 20140515
  Serious: Yes (Hospitalization)
  Sender: FDA-Public Use
  Company Number: FR-PFIZER INC-2013239598

PATIENT
  Age: 50 Year
  Sex: Female

DRUGS (9)
  1. ALDACTONE [Suspect]
     Indication: HYPERTENSION
     Dosage: 75 MG, 1X/DAY
     Route: 048
     Dates: start: 201304, end: 20130527
  2. BISEPTINE [Suspect]
     Indication: WOUND
     Dosage: 1 DF, 1X/DAY
     Route: 003
     Dates: end: 20130523
  3. LANTUS [Concomitant]
  4. NOVORAPID [Concomitant]
  5. METFORMIN [Concomitant]
  6. AXELER [Concomitant]
  7. LYRICA [Concomitant]
  8. LAMALINE [Concomitant]
  9. MEPILEX [Concomitant]
     Dosage: UNK
     Dates: start: 20130517

REACTIONS (1)
  - Eczema infected [Recovered/Resolved]
